APPROVED DRUG PRODUCT: PROPOXYPHENE HYDROCHLORIDE AND ACETAMINOPHEN
Active Ingredient: ACETAMINOPHEN; PROPOXYPHENE HYDROCHLORIDE
Strength: 650MG;65MG
Dosage Form/Route: TABLET;ORAL
Application: A089959 | Product #001
Applicant: SANDOZ INC
Approved: Jul 18, 1989 | RLD: No | RS: No | Type: DISCN